FAERS Safety Report 11622707 (Version 1)
Quarter: 2015Q4

REPORT INFORMATION
  Report Type: Spontaneous
  Country: US (occurrence: US)
  Receive Date: 20151013
  Receipt Date: 20151013
  Transmission Date: 20160304
  Serious: No
  Sender: FDA-Public Use
  Company Number: US-JNJFOC-20150911930

PATIENT
  Sex: Female

DRUGS (5)
  1. TYLENOL EXTRA STRENGTH [Suspect]
     Active Substance: ACETAMINOPHEN
     Indication: SCIATICA
     Dosage: FOR A FEW DAYS
     Route: 048
  2. TYLENOL EXTRA STRENGTH [Suspect]
     Active Substance: ACETAMINOPHEN
     Indication: SCIATICA
     Route: 048
     Dates: end: 20150914
  3. ALEVE [Concomitant]
     Active Substance: NAPROXEN SODIUM
     Indication: SCIATICA
     Route: 065
  4. ALEVE [Concomitant]
     Active Substance: NAPROXEN SODIUM
     Indication: SCIATICA
     Route: 065
  5. VITAMINS NOS [Concomitant]
     Active Substance: VITAMINS
     Indication: VITAMIN SUPPLEMENTATION
     Dosage: DAILY
     Route: 065

REACTIONS (4)
  - Product use issue [Not Recovered/Not Resolved]
  - Therapeutic response unexpected [Unknown]
  - Drug prescribing error [Not Recovered/Not Resolved]
  - Faeces discoloured [Not Recovered/Not Resolved]

NARRATIVE: CASE EVENT DATE: 20150913
